FAERS Safety Report 10227229 (Version 1)
Quarter: 2014Q2

REPORT INFORMATION
  Report Type: Spontaneous
  Country: US (occurrence: US)
  Receive Date: 20140610
  Receipt Date: 20140610
  Transmission Date: 20141212
  Serious: No
  Sender: FDA-Public Use
  Company Number: US-B.I. PHARMACEUTICALS,INC./RIDGEFIELD-2014-BI-24074BP

PATIENT
  Sex: Female

DRUGS (6)
  1. SPIRIVA [Suspect]
     Indication: CHRONIC OBSTRUCTIVE PULMONARY DISEASE
     Dosage: 18 MCG
     Route: 055
     Dates: start: 2011
  2. OCUVITE [Concomitant]
     Indication: MACULAR DEGENERATION
     Route: 048
  3. CALCIUM VIT D [Concomitant]
     Indication: SUPPLEMENTATION THERAPY
     Dosage: 1800 MG
     Route: 048
  4. VENTOLIN [Concomitant]
     Indication: CHRONIC OBSTRUCTIVE PULMONARY DISEASE
     Dosage: 216 MCG
     Route: 055
  5. FLOVENT [Concomitant]
     Indication: CHRONIC OBSTRUCTIVE PULMONARY DISEASE
     Dosage: 440 MCG
     Route: 055
  6. BABY ASPIRIN [Concomitant]
     Dosage: 80 MG
     Route: 048

REACTIONS (1)
  - Musculoskeletal discomfort [Not Recovered/Not Resolved]
